FAERS Safety Report 6848911-1 (Version None)
Quarter: 2010Q3

REPORT INFORMATION
  Report Type: 
  Country: None (occurrence: None)
  Receive Date: 20100716
  Receipt Date: 20071117
  Transmission Date: 20110219
  Serious: No
  Sender: FDA-Public Use
  Company Number: US-PFIZER INC-2007076395

PATIENT
  Sex: Female
  Weight: 65.5 kg

DRUGS (5)
  1. CHANTIX [Suspect]
     Indication: SMOKING CESSATION THERAPY
     Dates: start: 20070913
  2. GEODON [Concomitant]
  3. ATIVAN [Concomitant]
  4. VARIOUS ALIMENTARY TRACT + METABOLISM PRODUCT [Concomitant]
  5. VITAMIN B [Concomitant]

REACTIONS (3)
  - ASTHENIA [None]
  - DIZZINESS [None]
  - INAPPROPRIATE SCHEDULE OF DRUG ADMINISTRATION [None]
